FAERS Safety Report 24650023 (Version 2)
Quarter: 2024Q4

REPORT INFORMATION
  Report Type: Spontaneous
  Country: GB (occurrence: GB)
  Receive Date: 20241122
  Receipt Date: 20241224
  Transmission Date: 20250114
  Serious: No
  Sender: ROCHE
  Company Number: GB-ROCHE-10000135291

PATIENT

DRUGS (6)
  1. KADCYLA [Suspect]
     Active Substance: ADO-TRASTUZUMAB EMTANSINE
     Indication: HER2 positive breast cancer
     Route: 065
     Dates: start: 2017
  2. PHESGO [Suspect]
     Active Substance: HYALURONIDASE-ZZXF\PERTUZUMAB\TRASTUZUMAB
     Indication: Unevaluable event
     Route: 065
  3. HERCEPTIN [Suspect]
     Active Substance: TRASTUZUMAB
     Indication: Unevaluable event
     Route: 065
     Dates: start: 2015
  4. PERTUZUMAB [Suspect]
     Active Substance: PERTUZUMAB
     Indication: Unevaluable event
     Route: 065
  5. PACLITAXEL [Suspect]
     Active Substance: PACLITAXEL
     Indication: Unevaluable event
     Route: 065
     Dates: start: 2015
  6. CAPECITABINE [Suspect]
     Active Substance: CAPECITABINE
     Indication: Unevaluable event
     Route: 065
     Dates: start: 2016

REACTIONS (1)
  - Nodular regenerative hyperplasia [Unknown]
